APPROVED DRUG PRODUCT: LEVOFLOXACIN
Active Ingredient: LEVOFLOXACIN
Strength: 250MG
Dosage Form/Route: TABLET;ORAL
Application: A203613 | Product #001
Applicant: JUBILANT GENERICS LTD
Approved: Jun 19, 2015 | RLD: No | RS: No | Type: DISCN